FAERS Safety Report 18328736 (Version 2)
Quarter: 2020Q4

REPORT INFORMATION
  Report Type: Report from Study
  Country: None (occurrence: CO)
  Receive Date: 20200930
  Receipt Date: 20201009
  Transmission Date: 20210113
  Serious: Yes (Hospitalization)
  Sender: FDA-Public Use
  Company Number: CO-ABBVIE-20K-036-3588810-00

PATIENT
  Age: 75 Year
  Sex: Male
  Weight: 49 kg

DRUGS (3)
  1. IMBRUVICA [Suspect]
     Active Substance: IBRUTINIB
     Indication: CHRONIC LYMPHOCYTIC LEUKAEMIA
     Route: 048
     Dates: start: 20181229
  2. LEVOTIROXINA [Concomitant]
     Active Substance: LEVOTHYROXINE
     Indication: PRODUCT USED FOR UNKNOWN INDICATION
  3. LOSARTAN. [Concomitant]
     Active Substance: LOSARTAN
     Indication: PRODUCT USED FOR UNKNOWN INDICATION

REACTIONS (3)
  - Hypertension [Recovering/Resolving]
  - Eye disorder [Recovering/Resolving]
  - Dyskinesia [Recovering/Resolving]

NARRATIVE: CASE EVENT DATE: 20200919
